FAERS Safety Report 20896015 (Version 2)
Quarter: 2022Q2

REPORT INFORMATION
  Report Type: Report from Study
  Country: BG (occurrence: BG)
  Receive Date: 20220531
  Receipt Date: 20220604
  Transmission Date: 20220721
  Serious: Yes (Death, Hospitalization, Other)
  Sender: FDA-Public Use
  Company Number: BG-NOVARTISPH-NVSC2022BG124697

PATIENT
  Age: 57 Year
  Sex: Female

DRUGS (7)
  1. ENTRESTO [Suspect]
     Active Substance: SACUBITRIL\VALSARTAN
     Indication: Cardiac failure
     Dosage: 1 DOSAGE FORM, BID (24/26 MG)
     Route: 048
     Dates: start: 20220328, end: 20220414
  2. ENTRESTO [Suspect]
     Active Substance: SACUBITRIL\VALSARTAN
     Dosage: 1 DOSAGE FORM, BID (49/51 MG)
     Route: 048
     Dates: start: 20220415
  3. TRIFAS [Concomitant]
     Indication: Cardiac failure
     Dosage: 2 DOSAGE FORM, QD (IN THE MORNING)
     Route: 048
  4. DEHYDRAZID [Concomitant]
     Indication: Cardiac failure
     Dosage: 1 DOSAGE FORM, QD (IN THE MORNING)
     Route: 048
  5. ARETA [Concomitant]
     Indication: Hypertension
     Dosage: 2 DOSAGE FORM, BID
     Route: 048
  6. SPIRONOLACTONE [Concomitant]
     Active Substance: SPIRONOLACTONE
     Indication: Cardiac failure
     Dosage: 2 DOSAGE FORM, BID
     Route: 048
  7. BISOPROLOL FUMARATE [Concomitant]
     Active Substance: BISOPROLOL FUMARATE
     Indication: Atrial fibrillation
     Dosage: 2 DOSAGE FORM, BID (5MG)
     Route: 048

REACTIONS (4)
  - Cerebrovascular accident [Fatal]
  - Hypertension [Unknown]
  - Gangrene [Unknown]
  - Concomitant disease aggravated [Unknown]

NARRATIVE: CASE EVENT DATE: 20220415
